FAERS Safety Report 6469717-1 (Version None)
Quarter: 2009Q4

REPORT INFORMATION
  Report Type: 
  Country: None (occurrence: None)
  Receive Date: 20091130
  Receipt Date: 20091119
  Transmission Date: 20100525
  Serious: Yes (Hospitalization)
  Sender: FDA-Public Use
  Company Number: 2009SP031070

PATIENT
  Age: 36 Year
  Sex: Female

DRUGS (6)
  1. IMPLANON [Suspect]
     Indication: CONTRACEPTION
     Dosage: 1 DF
     Dates: start: 20071119, end: 20091015
  2. LYRICA [Concomitant]
  3. PANODIL FORTE [Concomitant]
  4. DICLOFENAC [Concomitant]
  5. CETRIZIN [Concomitant]
  6. SYMBICORT [Concomitant]

REACTIONS (8)
  - ABORTION SPONTANEOUS [None]
  - DRUG EXPOSURE DURING PREGNANCY [None]
  - DYSMENORRHOEA [None]
  - MALAISE [None]
  - MENORRHAGIA [None]
  - PREGNANCY WITH CONTRACEPTIVE DEVICE [None]
  - UTERINE PAIN [None]
  - VULVOVAGINAL PAIN [None]
